FAERS Safety Report 24445034 (Version 4)
Quarter: 2025Q3

REPORT INFORMATION
  Report Type: Spontaneous
  Country: EU (occurrence: EU)
  Receive Date: 20241016
  Receipt Date: 20250910
  Transmission Date: 20251020
  Serious: Yes (Other)
  Sender: DR REDDYS
  Company Number: None

PATIENT
  Age: 37 Year
  Sex: Female

DRUGS (12)
  1. PREGABALIN [Suspect]
     Active Substance: PREGABALIN
     Indication: Bipolar II disorder
     Dosage: 50 MILLIGRAM, QD (ONCE A DAY) (LOW DOSE)
     Route: 050
  2. PREGABALIN [Suspect]
     Active Substance: PREGABALIN
     Indication: Depression
     Dosage: INCREASED DOSE 100 MG/D
     Route: 050
  3. PREGABALIN [Suspect]
     Active Substance: PREGABALIN
     Indication: Alcoholism
  4. PREGABALIN [Suspect]
     Active Substance: PREGABALIN
     Indication: Alcohol use disorder
  5. PREGABALIN [Suspect]
     Active Substance: PREGABALIN
     Indication: Anxiety
  6. LAMOTRIGINE [Suspect]
     Active Substance: LAMOTRIGINE
     Indication: Bipolar II disorder
  7. ESCITALOPRAM [Suspect]
     Active Substance: ESCITALOPRAM OXALATE
     Indication: Depression
     Route: 065
  8. LITHIUM [Suspect]
     Active Substance: LITHIUM
     Indication: Bipolar II disorder
     Route: 065
  9. QUETIAPINE [Concomitant]
     Active Substance: QUETIAPINE
     Indication: Bipolar II disorder
     Dosage: MONOTHERAPY WITH 150MG QUETIAPINE RET. (EXTENDED RELEASE) SIX MONTHS
     Route: 048
  10. QUETIAPINE [Concomitant]
     Active Substance: QUETIAPINE
     Indication: Anxiety
     Dosage: 200 MG, QD /INCREASED THE QUETIAPINE TO 200 MG/D
     Route: 065
  11. QUETIAPINE [Concomitant]
     Active Substance: QUETIAPINE
     Indication: Alcohol use disorder
  12. QUETIAPINE [Concomitant]
     Active Substance: QUETIAPINE
     Indication: Depression

REACTIONS (12)
  - Suicidal ideation [Unknown]
  - Bipolar II disorder [Unknown]
  - Drug ineffective [Recovered/Resolved]
  - Self-destructive behaviour [Recovered/Resolved]
  - Intentional self-injury [Recovering/Resolving]
  - Drug ineffective for unapproved indication [Recovered/Resolved]
  - Depressive symptom [Recovered/Resolved]
  - Self-injurious ideation [Recovering/Resolving]
  - Condition aggravated [Recovering/Resolving]
  - Product use in unapproved indication [Recovered/Resolved]
  - Crying [Recovering/Resolving]
  - Feeling of despair [Recovering/Resolving]
